FAERS Safety Report 8163381-1 (Version None)
Quarter: 2012Q1

REPORT INFORMATION
  Report Type: 
  Country: None (occurrence: None)
  Receive Date: 20120221
  Receipt Date: 20120213
  Transmission Date: 20120608
  Serious: Yes (Hospitalization)
  Sender: FDA-Public Use
  Company Number: 2012SP006387

PATIENT
  Age: 58 Year
  Sex: Female

DRUGS (5)
  1. LORAZEPAM [Suspect]
     Indication: INSOMNIA
     Dosage: 2.5 MG;TID
     Dates: start: 20120131, end: 20120201
  2. LORAZEPAM [Suspect]
     Indication: BIPOLAR DISORDER
     Dosage: 2.5 MG;TID
     Dates: start: 20120131, end: 20120201
  3. SYCREST (ASENAPINE /05706901/) [Suspect]
     Indication: MANIA
     Dosage: 20 MG;QD;PO
     Route: 048
     Dates: start: 20120120
  4. SYCREST (ASENAPINE /05706901/) [Suspect]
     Indication: BIPOLAR DISORDER
     Dosage: 20 MG;QD;PO
     Route: 048
     Dates: start: 20120120
  5. OXCARBAZEPINE [Suspect]
     Indication: MANIA
     Dosage: 300 MG;TID

REACTIONS (2)
  - SEDATION [None]
  - MANIA [None]
